FAERS Safety Report 7136312-0 (Version None)
Quarter: 2010Q4

REPORT INFORMATION
  Report Type: 
  Country: None (occurrence: None)
  Receive Date: 20101206
  Receipt Date: 20101123
  Transmission Date: 20110411
  Serious: No
  Sender: FDA-Public Use
  Company Number: US-BIOGENIDEC-2010BI041765

PATIENT
  Age: 44 Year
  Sex: Female

DRUGS (2)
  1. TYSABRI [Suspect]
     Indication: MULTIPLE SCLEROSIS
     Route: 042
     Dates: start: 20090824, end: 20100924
  2. BLADDER MEDICATION (NOS) [Concomitant]
     Indication: URINARY RETENTION
     Dates: start: 20101121

REACTIONS (2)
  - CRYING [None]
  - TREMOR [None]
